FAERS Safety Report 24228286 (Version 4)
Quarter: 2024Q4

REPORT INFORMATION
  Report Type: Report from Study
  Country: US (occurrence: US)
  Receive Date: 20240820
  Receipt Date: 20241204
  Transmission Date: 20250114
  Serious: Yes (Other)
  Sender: ABBVIE
  Company Number: US-ABBVIE-5880093

PATIENT
  Age: 55 Year
  Sex: Female

DRUGS (1)
  1. SKYRIZI [Suspect]
     Active Substance: RISANKIZUMAB-RZAA
     Indication: Psoriatic arthropathy
     Route: 058
     Dates: start: 20221128, end: 202408

REACTIONS (17)
  - Nerve compression [Recovering/Resolving]
  - Migraine [Recovering/Resolving]
  - Polyneuropathy [Unknown]
  - Post procedural inflammation [Recovering/Resolving]
  - Pulmonary mass [Unknown]
  - Fibromyalgia [Unknown]
  - Eye pain [Unknown]
  - Exposure to toxic agent [Unknown]
  - Burning sensation [Unknown]
  - Incision site pain [Unknown]
  - Incision site hypoaesthesia [Unknown]
  - Osteoarthritis [Not Recovered/Not Resolved]
  - Therapeutic product effect incomplete [Unknown]
  - Impaired healing [Unknown]
  - Therapeutic response shortened [Unknown]
  - Psoriatic arthropathy [Unknown]
  - Upper respiratory tract infection [Recovering/Resolving]

NARRATIVE: CASE EVENT DATE: 20240101
